FAERS Safety Report 6857392-3 (Version None)
Quarter: 2010Q3

REPORT INFORMATION
  Report Type: 
  Country: None (occurrence: None)
  Receive Date: 20100719
  Receipt Date: 20080122
  Transmission Date: 20110219
  Serious: No
  Sender: FDA-Public Use
  Company Number: US-PFIZER INC-2008008353

PATIENT
  Sex: Female
  Weight: 50.909 kg

DRUGS (1)
  1. CHANTIX [Suspect]
     Indication: SMOKING CESSATION THERAPY
     Dates: start: 20080114, end: 20080120

REACTIONS (4)
  - ANGER [None]
  - FEELING ABNORMAL [None]
  - IMPATIENCE [None]
  - PERSONALITY CHANGE [None]
